FAERS Safety Report 21843261 (Version 1)
Quarter: 2023Q1

REPORT INFORMATION
  Report Type: Spontaneous
  Country: LT (occurrence: LT)
  Receive Date: 20230110
  Receipt Date: 20230110
  Transmission Date: 20230418
  Serious: Yes (Other)
  Sender: FDA-Public Use
  Company Number: LT-TEVA-2022-LT-2839274

PATIENT
  Sex: Female

DRUGS (1)
  1. OLANZAPINE [Suspect]
     Active Substance: OLANZAPINE
     Indication: Nerve block
     Dosage: 5 MG, UNKNOWN
     Route: 065

REACTIONS (8)
  - Ovarian cancer [Unknown]
  - Drug dependence [Unknown]
  - Weight increased [Unknown]
  - Dysmenorrhoea [Unknown]
  - Menstruation irregular [Unknown]
  - Off label use [Unknown]
  - Drug withdrawal syndrome [Unknown]
  - Blood oestrogen increased [Unknown]
